FAERS Safety Report 13668332 (Version 1)
Quarter: 2017Q2

REPORT INFORMATION
  Report Type: Spontaneous
  Country: FR (occurrence: FR)
  Receive Date: 20170620
  Receipt Date: 20170620
  Transmission Date: 20170830
  Serious: Yes (Life-Threatening, Hospitalization, Other)
  Sender: FDA-Public Use
  Company Number: FR-ACCORD-052873

PATIENT
  Age: 24 Year
  Sex: Male

DRUGS (1)
  1. TRAMADOL/TRAMADOL HYDROCHLORIDE [Suspect]
     Active Substance: TRAMADOL HYDROCHLORIDE
     Route: 048

REACTIONS (6)
  - Intentional overdose [Unknown]
  - Consciousness fluctuating [Unknown]
  - Toxicity to various agents [None]
  - Respiratory depression [Unknown]
  - Seizure [Recovered/Resolved]
  - Miosis [Unknown]
